FAERS Safety Report 7988837-3 (Version None)
Quarter: 2011Q4

REPORT INFORMATION
  Report Type: 
  Country: None (occurrence: None)
  Receive Date: 20111219
  Receipt Date: 20111212
  Transmission Date: 20120403
  Serious: Yes (Other)
  Sender: FDA-Public Use
  Company Number: US-SHIRE-ALL1-2011-04902

PATIENT
  Age: 24 Year
  Sex: Male

DRUGS (1)
  1. ELAPRASE [Suspect]
     Indication: MUCOPOLYSACCHARIDOSIS II
     Dosage: 10 MG, 1X/WEEK (IN 250 ML SOLUTION)
     Route: 041

REACTIONS (6)
  - SWOLLEN TONGUE [None]
  - JOINT SWELLING [None]
  - RASH MACULAR [None]
  - MALAISE [None]
  - PRURITUS [None]
  - DYSPNOEA [None]
